FAERS Safety Report 5477474-0 (Version None)
Quarter: 2007Q4

REPORT INFORMATION
  Report Type: 
  Country: None (occurrence: None)
  Receive Date: 20071001
  Receipt Date: 20070913
  Transmission Date: 20080405
  Serious: Yes (Other)
  Sender: FDA-Public Use
  Company Number: 2007VX002222

PATIENT
  Age: 75 Year
  Sex: Male

DRUGS (3)
  1. PERMAX [Suspect]
     Indication: PARKINSON'S DISEASE
     Dosage: 1000 UG; QD; PO
     Route: 048
     Dates: start: 20070501
  2. CABERGOLINE [Concomitant]
  3. SIFROL [Concomitant]

REACTIONS (5)
  - BLEPHAROSPASM [None]
  - CONDITION AGGRAVATED [None]
  - DRUG INEFFECTIVE [None]
  - PARKINSON'S DISEASE [None]
  - VISUAL ACUITY REDUCED [None]
